FAERS Safety Report 5567324-6 (Version None)
Quarter: 2007Q4

REPORT INFORMATION
  Report Type: 
  Country: None (occurrence: None)
  Receive Date: 20071219
  Receipt Date: 20070608
  Transmission Date: 20080405
  Serious: No
  Sender: FDA-Public Use
  Company Number: US-ABBOTT-07P-163-0372044-00

PATIENT
  Sex: Male

DRUGS (1)
  1. DILAUDID [Suspect]
     Indication: ANGINA PECTORIS

REACTIONS (2)
  - DRUG EFFECT DECREASED [None]
  - DRUG EFFECT PROLONGED [None]
